FAERS Safety Report 8861488 (Version 1)
Quarter: 2012Q4

REPORT INFORMATION
  Report Type: Spontaneous
  Country: US (occurrence: None)
  Receive Date: 20121022
  Receipt Date: 20121022
  Transmission Date: 20130627
  Serious: Yes (Other)
  Sender: FDA-Public Use
  Company Number: ABR_00662_2012

PATIENT
  Sex: Female
  Weight: 95.26 kg

DRUGS (1)
  1. ERYTHROMYCIN [Suspect]
     Indication: PERTUSSIS
     Route: 048
     Dates: start: 20121007, end: 20121007

REACTIONS (5)
  - Swollen tongue [None]
  - Tongue disorder [None]
  - Aphasia [None]
  - Lacrimation increased [None]
  - Hypersensitivity [None]
